FAERS Safety Report 5605554-5 (Version None)
Quarter: 2008Q1

REPORT INFORMATION
  Report Type: 
  Country: None (occurrence: None)
  Receive Date: 20080123
  Receipt Date: 20080114
  Transmission Date: 20080703
  Serious: Yes (Hospitalization)
  Sender: FDA-Public Use
  Company Number: 2007BI019059

PATIENT
  Age: 39 Year
  Sex: Male

DRUGS (1)
  1. TYSABRI [Suspect]
     Indication: MULTIPLE SCLEROSIS
     Dosage: 300 MG;QM;IV
     Route: 042
     Dates: start: 20070301

REACTIONS (13)
  - ARTHRALGIA [None]
  - ARTHRITIS [None]
  - BODY TEMPERATURE INCREASED [None]
  - C-REACTIVE PROTEIN INCREASED [None]
  - ERYTHEMA NODOSUM [None]
  - ILL-DEFINED DISORDER [None]
  - JOINT SWELLING [None]
  - PAIN [None]
  - RED BLOOD CELL SEDIMENTATION RATE INCREASED [None]
  - SARCOIDOSIS [None]
  - SKIN DISORDER [None]
  - SWELLING [None]
  - TENDERNESS [None]
